FAERS Safety Report 15922240 (Version 1)
Quarter: 2019Q1

REPORT INFORMATION
  Report Type: Spontaneous
  Country: US (occurrence: US)
  Receive Date: 20190115
  Receipt Date: 20190115
  Transmission Date: 20190417
  Serious: Yes (Other)
  Sender: FDA-Public Use
  Company Number: None

PATIENT
  Age: 59 Year
  Sex: Female
  Weight: 78.93 kg

DRUGS (1)
  1. PRE-PEN [Suspect]
     Active Substance: BENZYLPENICILLOYL POLYLYSINE
     Indication: ALLERGY TEST
     Dosage: 6.0 X 10E-5 M TWICE SCRATCH AND INTRA DERMAL
     Route: 023

REACTIONS (1)
  - Skin test positive [None]

NARRATIVE: CASE EVENT DATE: 20180913
